FAERS Safety Report 7400832-1 (Version None)
Quarter: 2011Q2

REPORT INFORMATION
  Report Type: 
  Country: None (occurrence: None)
  Receive Date: 20110407
  Receipt Date: 20101130
  Transmission Date: 20111010
  Serious: Yes (Hospitalization, Other)
  Sender: FDA-Public Use
  Company Number: US-BAYER-201022568NA

PATIENT
  Sex: Female
  Weight: 144.22 kg

DRUGS (18)
  1. LEXAPRO [Concomitant]
     Dosage: 20 MG, UNK
     Route: 048
  2. LISINOPRIL [Concomitant]
     Indication: BLOOD PRESSURE MANAGEMENT
     Dosage: UNK
     Dates: start: 20070101
  3. UNCODEABLE ^UNCLASSIFIABLE^ [Concomitant]
  4. UNCODEABLE ^UNCLASSIFIABLE^ [Concomitant]
  5. EFFEXOR [Concomitant]
     Indication: ANXIETY
     Dosage: UNK
     Dates: start: 20060101
  6. GLUCOPHAGE [Concomitant]
     Indication: POLYCYSTIC OVARIES
     Dosage: 1000 MG, UNK
     Dates: start: 20000101
  7. NEXIUM [Concomitant]
     Dosage: 40 MG, UNK
     Dates: start: 20060101, end: 20090101
  8. UNCODEABLE ^UNCLASSIFIABLE^ [Concomitant]
     Dosage: 100 MG, UNK
     Route: 048
     Dates: start: 20030423
  9. ANTIBIOTICS [Concomitant]
     Dosage: UNK UNK, PRN
  10. UNCODEABLE ^UNCLASSIFIABLE^ [Concomitant]
     Indication: MIGRAINE
     Dosage: UNK UNK, PRN
  11. METFORMIN HCL [Concomitant]
     Route: 048
  12. ZANTAC [Concomitant]
     Dosage: 150 MG, UNK
     Route: 048
     Dates: start: 20060705
  13. DONNATAL [Concomitant]
     Dosage: 16.2 MG, UNK
     Route: 048
     Dates: start: 20060705
  14. UNCODEABLE ^UNCLASSIFIABLE^ [Concomitant]
  15. GLUCOPHAGE [Concomitant]
     Dosage: 500 MG, UNK
     Route: 048
     Dates: start: 20020221
  16. YASMIN [Suspect]
     Indication: UNEVALUABLE EVENT
     Dosage: UNK
     Dates: start: 20001001, end: 20060901
  17. NSAID'S [Concomitant]
     Dosage: UNK UNK, PRN
  18. ASPIRIN [Concomitant]
     Dosage: 81 MG, UNK
     Route: 048
     Dates: start: 20051010

REACTIONS (6)
  - PALPITATIONS [None]
  - CHOLELITHIASIS [None]
  - GALLBLADDER DISORDER [None]
  - ANGINA PECTORIS [None]
  - BILIARY DYSKINESIA [None]
  - ABDOMINAL PAIN [None]
